FAERS Safety Report 7424072-5 (Version None)
Quarter: 2011Q2

REPORT INFORMATION
  Report Type: 
  Country: None (occurrence: None)
  Receive Date: 20110419
  Receipt Date: 20110414
  Transmission Date: 20111010
  Serious: Yes (Disabling)
  Sender: FDA-Public Use
  Company Number: US-ABBOTT-11P-163-0712514-00

PATIENT
  Sex: Female
  Weight: 44.946 kg

DRUGS (1)
  1. LUPRON DEPOT-PED [Suspect]
     Indication: PRECOCIOUS PUBERTY
     Route: 030
     Dates: start: 20100801, end: 20110201

REACTIONS (8)
  - MOBILITY DECREASED [None]
  - NEUROPATHY PERIPHERAL [None]
  - ARTHRALGIA [None]
  - CSF PROTEIN INCREASED [None]
  - GAIT DISTURBANCE [None]
  - PAIN IN EXTREMITY [None]
  - FALL [None]
  - BALANCE DISORDER [None]
